FAERS Safety Report 19126016 (Version 1)
Quarter: 2021Q2

REPORT INFORMATION
  Report Type: Spontaneous
  Country: US (occurrence: US)
  Receive Date: 20210412
  Receipt Date: 20210412
  Transmission Date: 20210717
  Serious: No
  Sender: FDA-Public Use
  Company Number: None

PATIENT
  Age: 36 Year
  Sex: Female
  Weight: 57.15 kg

DRUGS (8)
  1. QBREXZA [Suspect]
     Active Substance: GLYCOPYRRONIUM TOSYLATE
     Indication: HYPERHIDROSIS
     Dosage: ?          QUANTITY:1 CLOTH;?
     Route: 061
     Dates: start: 20210331, end: 20210412
  2. LESSINA [Concomitant]
     Active Substance: ETHINYL ESTRADIOL\LEVONORGESTREL
  3. ALBUTEROL. [Concomitant]
     Active Substance: ALBUTEROL
  4. QBREXZA [Concomitant]
     Active Substance: GLYCOPYRRONIUM TOSYLATE
  5. VYVANSE [Concomitant]
     Active Substance: LISDEXAMFETAMINE DIMESYLATE
  6. VITAMIN B [Concomitant]
     Active Substance: VITAMIN B
  7. VITAMIN D [Concomitant]
     Active Substance: VITAMIN D NOS
  8. FLAXSEED [Concomitant]
     Active Substance: FLAX SEED

REACTIONS (3)
  - Vision blurred [None]
  - Mydriasis [None]
  - Migraine [None]

NARRATIVE: CASE EVENT DATE: 20210412
